FAERS Safety Report 14937480 (Version 2)
Quarter: 2018Q3

REPORT INFORMATION
  Report Type: Spontaneous
  Country: ES (occurrence: ES)
  Receive Date: 20180525
  Receipt Date: 20180803
  Transmission Date: 20181010
  Serious: Yes (Life-Threatening, Hospitalization, Other)
  Sender: FDA-Public Use
  Company Number: ES-AUROBINDO-AUR-APL-2018-026988

PATIENT
  Age: 10 Year
  Sex: Female

DRUGS (1)
  1. IBUPROFEN. [Suspect]
     Active Substance: IBUPROFEN
     Indication: PYREXIA
     Dosage: UNK
     Route: 065

REACTIONS (10)
  - Dry eye [Recovered/Resolved]
  - Limbal stem cell deficiency [Unknown]
  - Toxic epidermal necrolysis [Unknown]
  - Conjunctivitis [Recovered/Resolved]
  - Corneal neovascularisation [Unknown]
  - Stevens-Johnson syndrome [Unknown]
  - Ulcerative keratitis [Recovered/Resolved]
  - Distichiasis [Unknown]
  - Eye disorder [Recovered/Resolved]
  - Corneal leukoma [Unknown]
